FAERS Safety Report 9601836 (Version 4)
Quarter: 2014Q4

REPORT INFORMATION
  Report Type: Spontaneous
  Country: US (occurrence: US)
  Receive Date: 20131007
  Receipt Date: 20141010
  Transmission Date: 20150529
  Serious: Yes (Hospitalization, Other)
  Sender: FDA-Public Use
  Company Number: US-BAYER-2013-120494

PATIENT
  Age: 36 Year
  Sex: Female
  Weight: 73 kg

DRUGS (1)
  1. MIRENA [Suspect]
     Active Substance: LEVONORGESTREL
     Indication: CONTRACEPTION
     Dosage: 20 MCG/24HR, CONT
     Route: 015
     Dates: start: 20110420, end: 20130328

REACTIONS (7)
  - Pain [None]
  - Emotional distress [None]
  - Fallopian tube perforation [None]
  - Ectopic pregnancy with contraceptive device [None]
  - Injury [None]
  - Menorrhagia [None]
  - Drug ineffective [None]

NARRATIVE: CASE EVENT DATE: 20121227
